FAERS Safety Report 4980625-5 (Version None)
Quarter: 2006Q2

REPORT INFORMATION
  Report Type: 
  Country: None (occurrence: None)
  Receive Date: 20060424
  Receipt Date: 20050829
  Transmission Date: 20061013
  Serious: Yes (Hospitalization)
  Sender: FDA-Public Use
  Company Number: US-MERCK-0508USA04597

PATIENT
  Age: 49 Year
  Sex: Male
  Weight: 83 kg

DRUGS (5)
  1. VIOXX [Suspect]
     Indication: BACK PAIN
     Route: 048
     Dates: start: 20040101, end: 20040901
  2. VIOXX [Suspect]
     Indication: DRESSLER'S SYNDROME
     Route: 048
     Dates: start: 20040101, end: 20040901
  3. IBUPROFEN [Concomitant]
     Route: 065
  4. ACIPHEX [Concomitant]
     Route: 048
  5. HYDROCHLOROTHIAZIDE [Concomitant]
     Route: 048

REACTIONS (8)
  - ACUTE MYOCARDIAL INFARCTION [None]
  - CHEST PAIN [None]
  - CORONARY ARTERY DISEASE [None]
  - DRESSLER'S SYNDROME [None]
  - INTERVERTEBRAL DISC DISORDER [None]
  - NON-CARDIAC CHEST PAIN [None]
  - SLEEP APNOEA SYNDROME [None]
  - VENTRICULAR HYPERTROPHY [None]
